FAERS Safety Report 8535600-0 (Version None)
Quarter: 2012Q3

REPORT INFORMATION
  Report Type: 
  Country: None (occurrence: None)
  Receive Date: 20120725
  Receipt Date: 20120716
  Transmission Date: 20120928
  Serious: Yes (Life-Threatening, Hospitalization, Disabling, Other)
  Sender: FDA-Public Use
  Company Number: US-009507513-2012SP011838

PATIENT

DRUGS (1)
  1. NUVARING [Suspect]
     Indication: CONTRACEPTION
     Dosage: UNK
     Dates: start: 20080918, end: 20100301

REACTIONS (20)
  - PULMONARY EMBOLISM [None]
  - DEEP VEIN THROMBOSIS [None]
  - ASTHENIA [None]
  - DEPRESSION [None]
  - JOINT INJURY [None]
  - ANXIETY [None]
  - INITIAL INSOMNIA [None]
  - SPINAL OSTEOARTHRITIS [None]
  - CHEST PAIN [None]
  - PRURITUS [None]
  - MIGRAINE [None]
  - SCOLIOSIS [None]
  - PHLEBITIS [None]
  - ASTHMA [None]
  - HEART RATE IRREGULAR [None]
  - SMEAR CERVIX ABNORMAL [None]
  - OVARIAN CYST [None]
  - CHOLELITHIASIS [None]
  - FALL [None]
  - DYSPNOEA [None]
